FAERS Safety Report 15097737 (Version 1)
Quarter: 2018Q3

REPORT INFORMATION
  Report Type: Spontaneous
  Country: US (occurrence: US)
  Receive Date: 20180702
  Receipt Date: 20180702
  Transmission Date: 20181010
  Serious: No
  Sender: FDA-Public Use
  Company Number: US-BAYER-2018-118174

PATIENT
  Age: 71 Year
  Sex: Male
  Weight: 106.98 kg

DRUGS (1)
  1. MIRALAX [Suspect]
     Active Substance: POLYETHYLENE GLYCOL 3350
     Dosage: 238 G, WITH 2 DOC?Q?LAX DOSE
     Route: 048

REACTIONS (3)
  - Off label use [Unknown]
  - Circumstance or information capable of leading to medication error [Unknown]
  - Product prescribing issue [Unknown]

NARRATIVE: CASE EVENT DATE: 20180618
